FAERS Safety Report 18968471 (Version 1)
Quarter: 2021Q1

REPORT INFORMATION
  Report Type: Spontaneous
  Country: FR (occurrence: FR)
  Receive Date: 20210304
  Receipt Date: 20210304
  Transmission Date: 20210420
  Serious: Yes (Hospitalization)
  Sender: FDA-Public Use
  Company Number: FR-BAYER-2021-077978

PATIENT
  Age: 1 Year
  Sex: Male
  Weight: 11.5 kg

DRUGS (2)
  1. KOVALTRY [Suspect]
     Active Substance: ANTIHEMOPHILIC FACTOR, HUMAN RECOMBINANT
     Indication: HAEMORRHAGE
     Dosage: 500 IU
     Route: 042
     Dates: start: 20201112
  2. KOVALTRY [Suspect]
     Active Substance: ANTIHEMOPHILIC FACTOR, HUMAN RECOMBINANT
     Indication: HAEMORRHAGE
     Route: 042
     Dates: start: 20201112

REACTIONS (1)
  - Alloimmunisation [Not Recovered/Not Resolved]

NARRATIVE: CASE EVENT DATE: 20210113
